FAERS Safety Report 24045711 (Version 1)
Quarter: 2024Q3

REPORT INFORMATION
  Report Type: Report from Study
  Country: US (occurrence: US)
  Receive Date: 20240703
  Receipt Date: 20240703
  Transmission Date: 20241017
  Serious: Yes (Other)
  Sender: UCB
  Company Number: US-UCBSA-2024033528

PATIENT
  Sex: Male

DRUGS (1)
  1. MIDAZOLAM [Suspect]
     Active Substance: MIDAZOLAM
     Indication: Seizure
     Dosage: 5 MILLIGRAM, AS NEEDED

REACTIONS (8)
  - Seizure [Not Recovered/Not Resolved]
  - Aura [Not Recovered/Not Resolved]
  - Pain in extremity [Not Recovered/Not Resolved]
  - Fatigue [Not Recovered/Not Resolved]
  - Headache [Not Recovered/Not Resolved]
  - Scratch [Not Recovered/Not Resolved]
  - Fall [Not Recovered/Not Resolved]
  - Head injury [Not Recovered/Not Resolved]

NARRATIVE: CASE EVENT DATE: 20240101
